FAERS Safety Report 7264556-6 (Version None)
Quarter: 2011Q1

REPORT INFORMATION
  Report Type: 
  Country: None (occurrence: None)
  Receive Date: 20110131
  Receipt Date: 20110125
  Transmission Date: 20110831
  Serious: No
  Sender: FDA-Public Use
  Company Number: US-PFIZER INC-2011017958

PATIENT
  Sex: Female
  Weight: 68 kg

DRUGS (3)
  1. NEURONTIN [Concomitant]
     Indication: MULTIPLE SCLEROSIS
     Dosage: 600 MG, 3X/DAY
  2. INTERFERON BETA-1A [Concomitant]
     Indication: MULTIPLE SCLEROSIS
     Dosage: UNK, 1X/WEEK
  3. ADVIL [Suspect]
     Indication: SINUS DISORDER
     Dosage: 30 MG, AS NEEDED
     Dates: start: 20110101

REACTIONS (4)
  - SINUS DISORDER [None]
  - HEADACHE [None]
  - DRUG INEFFECTIVE [None]
  - NASOPHARYNGITIS [None]
